FAERS Safety Report 6099180-4 (Version None)
Quarter: 2009Q1

REPORT INFORMATION
  Report Type: 
  Country: None (occurrence: None)
  Receive Date: 20090302
  Receipt Date: 20090218
  Transmission Date: 20090719
  Serious: Yes (Other)
  Sender: FDA-Public Use
  Company Number: AU-GILEAD-2007-0011571

PATIENT
  Sex: Male
  Weight: 60 kg

DRUGS (5)
  1. VIREAD [Suspect]
     Route: 048
     Dates: start: 20020223
  2. ATAZANAVIR SULFATE [Suspect]
     Route: 048
     Dates: start: 20040505
  3. RITONAVIR [Suspect]
     Route: 048
     Dates: start: 20040505
  4. NEVIRAPINE [Suspect]
     Route: 048
     Dates: start: 20020223
  5. LIPITOR [Suspect]
     Route: 048
     Dates: start: 20040202

REACTIONS (2)
  - BLOOD CREATININE INCREASED [None]
  - HYPERKALAEMIA [None]
